FAERS Safety Report 17557508 (Version 1)
Quarter: 2020Q1

REPORT INFORMATION
  Report Type: Spontaneous
  Country: FR (occurrence: FR)
  Receive Date: 20200318
  Receipt Date: 20200318
  Transmission Date: 20200409
  Serious: Yes (Hospitalization)
  Sender: FDA-Public Use
  Company Number: FR-PFIZER INC-2020114018

PATIENT
  Age: 46 Year
  Sex: Male

DRUGS (8)
  1. SUFENTANIL [Concomitant]
     Active Substance: SUFENTANIL
     Indication: GENERAL ANAESTHESIA
     Dosage: 15 UG, SINGLE
     Route: 041
     Dates: start: 20180828, end: 20180828
  2. CEFAZOLINE [CEFAZOLIN] [Suspect]
     Active Substance: CEFAZOLIN
     Indication: GENERAL ANAESTHESIA
     Dosage: 2000 MG, SINGLE
     Route: 040
     Dates: start: 20180828, end: 20180828
  3. CARBOCAINE [Concomitant]
     Active Substance: MEPIVACAINE HYDROCHLORIDE
     Indication: LOCAL ANAESTHESIA
     Dosage: 300 MG, SINGLE
     Route: 050
     Dates: start: 20180828, end: 20180828
  4. KETAMINE [Concomitant]
     Active Substance: KETAMINE
     Indication: GENERAL ANAESTHESIA
     Dosage: 30 MG, SINGLE
     Route: 041
     Dates: start: 20180828, end: 20180828
  5. ATRACURIUM BESILATE [Suspect]
     Active Substance: ATRACURIUM BESYLATE
     Indication: GENERAL ANAESTHESIA
     Dosage: 35 MG, SINGLE
     Route: 042
     Dates: start: 20180828, end: 20180828
  6. PROPOFOL. [Concomitant]
     Active Substance: PROPOFOL
     Indication: GENERAL ANAESTHESIA
     Dosage: 500 MG, SINGLE
     Route: 042
     Dates: start: 20180828, end: 20180828
  7. XYLOCAINE [EPINEPHRINE BITARTRATE;LIDOCAINE HYDROCHLORIDE] [Concomitant]
     Indication: LOCAL ANAESTHESIA
     Dosage: 70 MG, SINGLE
     Route: 050
     Dates: start: 20180828, end: 20180828
  8. DEXAMETHASONE. [Concomitant]
     Active Substance: DEXAMETHASONE
     Indication: GENERAL ANAESTHESIA
     Dosage: 4 MG, SINGLE
     Route: 042
     Dates: start: 20180828, end: 20180828

REACTIONS (1)
  - Anaphylactic shock [Recovered/Resolved]

NARRATIVE: CASE EVENT DATE: 20180828
